FAERS Safety Report 9721451 (Version 2)
Quarter: 2013Q4

REPORT INFORMATION
  Report Type: Report from Study
  Country: JP (occurrence: JP)
  Receive Date: 20131129
  Receipt Date: 20131129
  Transmission Date: 20140711
  Serious: Yes (Other)
  Sender: FDA-Public Use
  Company Number: JP-TAKEDA-2013TUS001850

PATIENT
  Sex: 0

DRUGS (3)
  1. FEBURIC [Suspect]
     Indication: HYPERURICAEMIA
     Dosage: 10 MG, QD
     Route: 048
     Dates: start: 20130208, end: 20130221
  2. FEBURIC [Suspect]
     Dosage: 20 MG, QD
     Route: 048
     Dates: start: 20130222, end: 20130510
  3. ADALAT CR [Concomitant]
     Indication: HYPERTENSION
     Dosage: 40 MG, QD
     Route: 048

REACTIONS (4)
  - Acute respiratory failure [Not Recovered/Not Resolved]
  - High density lipoprotein increased [Recovering/Resolving]
  - Blood urea increased [Recovering/Resolving]
  - Blood cholesterol increased [Recovering/Resolving]
